FAERS Safety Report 9208859 (Version 1)
Quarter: 2013Q1

REPORT INFORMATION
  Report Type: Spontaneous
  Country: US (occurrence: None)
  Receive Date: 20120817
  Receipt Date: 20120817
  Transmission Date: 20140127
  Serious: Yes (Hospitalization, Other)
  Sender: FDA-Public Use
  Company Number: ADR-2012-00694

PATIENT
  Age: 61 Year
  Sex: Female

DRUGS (3)
  1. LIORESAL INTRATHECAL ( BACLOFEN INJECTION)2000 MCG/ML [Suspect]
     Indication: MUSCLE SPASTICITY
  2. LIORESAL INTRATHECAL ( BACLOFEN INJECTION)2000 MCG/ML [Suspect]
     Indication: MULTIPLE SCLEROSIS
  3. CLONIDINE [Concomitant]

REACTIONS (1)
  - Drug withdrawal syndrome [None]
